FAERS Safety Report 11356168 (Version 1)
Quarter: 2015Q3

REPORT INFORMATION
  Report Type: Report from Study
  Country: US (occurrence: US)
  Receive Date: 20150807
  Receipt Date: 20150807
  Transmission Date: 20151125
  Serious: No
  Sender: FDA-Public Use
  Company Number: US-ABBVIE-15P-163-1418592-00

PATIENT
  Sex: Female

DRUGS (1)
  1. VIEKIRA PAK [Suspect]
     Active Substance: DASABUVIR\OMBITASVIR\PARITAPREVIR\RITONAVIR
     Indication: HEPATITIS C
     Dosage: 2 PINK TABS QD IN  AM, 1 BEIGE TAB BID IN AM AND PM
     Route: 048
     Dates: start: 2015

REACTIONS (5)
  - Blood sodium decreased [Recovering/Resolving]
  - Swelling [Recovering/Resolving]
  - Dry skin [Recovering/Resolving]
  - Inflammation [Recovering/Resolving]
  - Oedema peripheral [Recovering/Resolving]
